FAERS Safety Report 13986151 (Version 1)
Quarter: 2017Q3

REPORT INFORMATION
  Report Type: Spontaneous
  Country: US (occurrence: US)
  Receive Date: 20170918
  Receipt Date: 20170918
  Transmission Date: 20171128
  Serious: Yes (Life-Threatening, Disabling, Other)
  Sender: FDA-Public Use
  Company Number: None

PATIENT
  Sex: Female
  Weight: 72 kg

DRUGS (11)
  1. ADDERALL [Concomitant]
     Active Substance: AMPHETAMINE ASPARTATE\AMPHETAMINE SULFATE\DEXTROAMPHETAMINE SACCHARATE\DEXTROAMPHETAMINE SULFATE
  2. VITAMIN D3 [Concomitant]
     Active Substance: CHOLECALCIFEROL
  3. NATURE MADE MULTI FOR HER (MULTIVITAMIN) [Concomitant]
  4. DESOXYN [Concomitant]
     Active Substance: METHAMPHETAMINE HYDROCHLORIDE
  5. METHAMPHETAMINE 5 MG TABLET [Suspect]
     Active Substance: METHAMPHETAMINE HYDROCHLORIDE
     Indication: SENSORY PROCESSING DISORDER
     Dosage: ?          QUANTITY:2 TABLET(S);?
     Route: 048
  6. KLONOPIN [Concomitant]
     Active Substance: CLONAZEPAM
  7. ZOLOFT [Concomitant]
     Active Substance: SERTRALINE HYDROCHLORIDE
  8. LAMICTAL [Concomitant]
     Active Substance: LAMOTRIGINE
  9. METHAMPHETAMINE 5 MG [Suspect]
     Active Substance: METHAMPHETAMINE
     Indication: SENSORY PROCESSING DISORDER
     Route: 048
  10. BIOTIN [Concomitant]
     Active Substance: BIOTIN
  11. MELATONIN [Concomitant]
     Active Substance: MELATONIN

REACTIONS (3)
  - Weight increased [None]
  - Drug ineffective [None]
  - Depression [None]

NARRATIVE: CASE EVENT DATE: 20160210
